FAERS Safety Report 20925007 (Version 2)
Quarter: 2022Q2

REPORT INFORMATION
  Report Type: Spontaneous
  Country: RU (occurrence: RU)
  Receive Date: 20220607
  Receipt Date: 20220610
  Transmission Date: 20220721
  Serious: Yes (Hospitalization, Other)
  Sender: FDA-Public Use
  Company Number: RU-Merck Healthcare KGaA-9326142

PATIENT
  Age: 67 Year
  Sex: Male

DRUGS (8)
  1. ERBITUX [Suspect]
     Active Substance: CETUXIMAB
     Indication: Rectal cancer
     Dosage: 400 MG/M2, DAILY
     Route: 042
     Dates: start: 202106
  2. ERBITUX [Suspect]
     Active Substance: CETUXIMAB
     Dosage: 250 MG/M2, WEEKLY (1/W)
     Route: 042
     Dates: end: 202201
  3. ERBITUX [Suspect]
     Active Substance: CETUXIMAB
     Dosage: 500 MG/M2, UNKNOWN
     Route: 042
     Dates: start: 202201
  4. OXALIPLATIN [Concomitant]
     Active Substance: OXALIPLATIN
     Indication: Rectal cancer
     Dosage: 130 MG/M2, UNKNOWN
     Route: 042
     Dates: start: 201812, end: 201902
  5. OXALIPLATIN [Concomitant]
     Active Substance: OXALIPLATIN
     Dosage: 85 MG/M2, DAILY
     Route: 042
     Dates: start: 202106, end: 202201
  6. LEUCOVORIN CALCIUM [Concomitant]
     Active Substance: LEUCOVORIN CALCIUM
     Indication: Rectal cancer
     Dosage: 400 MG/M2, DAILY
     Route: 042
     Dates: start: 202106, end: 202201
  7. FLUOROURACIL [Concomitant]
     Active Substance: FLUOROURACIL
     Indication: Rectal cancer
     Dosage: 400 MG/M2, UNK
     Route: 040
     Dates: start: 202106
  8. FLUOROURACIL [Concomitant]
     Active Substance: FLUOROURACIL
     Dosage: 2400 MG/M2, UNK
     Route: 040
     Dates: end: 202201

REACTIONS (2)
  - COVID-19 [Unknown]
  - Pulmonary embolism [Unknown]

NARRATIVE: CASE EVENT DATE: 20211025
